FAERS Safety Report 13777103 (Version 1)
Quarter: 2017Q3

REPORT INFORMATION
  Report Type: Spontaneous
  Country: US (occurrence: US)
  Receive Date: 20170721
  Receipt Date: 20170721
  Transmission Date: 20171127
  Serious: Yes (Other)
  Sender: FDA-Public Use
  Company Number: None

PATIENT
  Age: 77 Year
  Sex: Male
  Weight: 74 kg

DRUGS (11)
  1. ZOLPIDEM [Concomitant]
     Active Substance: ZOLPIDEM\ZOLPIDEM TARTRATE
  2. TAMSULOSIN [Concomitant]
     Active Substance: TAMSULOSIN
  3. NINLARO [Suspect]
     Active Substance: IXAZOMIB
     Indication: PLASMA CELL MYELOMA
     Dosage: ?          OTHER DOSE:MG;OTHER FREQUENCY:WEEKLY;?
     Route: 048
     Dates: start: 20161123, end: 20170720
  4. WARFARIN [Concomitant]
     Active Substance: WARFARIN
  5. PRAVASATATIN [Concomitant]
  6. REVLIMID [Concomitant]
     Active Substance: LENALIDOMIDE
  7. METFORMIN [Concomitant]
     Active Substance: METFORMIN HYDROCHLORIDE
  8. MIRALAX [Concomitant]
     Active Substance: POLYETHYLENE GLYCOL 3350
  9. LISINOPRIL. [Concomitant]
     Active Substance: LISINOPRIL
  10. BISACODYL. [Concomitant]
     Active Substance: BISACODYL
  11. ACETAMINOPHEN. [Concomitant]
     Active Substance: ACETAMINOPHEN

REACTIONS (5)
  - Muscle atrophy [None]
  - Skin discolouration [None]
  - Gait inability [None]
  - Fatigue [None]
  - Anaemia [None]

NARRATIVE: CASE EVENT DATE: 20170720
